FAERS Safety Report 8015271-2 (Version None)
Quarter: 2011Q4

REPORT INFORMATION
  Report Type: 
  Country: None (occurrence: None)
  Receive Date: 20111230
  Receipt Date: 20111221
  Transmission Date: 20120403
  Serious: Yes (Hospitalization)
  Sender: FDA-Public Use
  Company Number: AR-AMGEN-ARGSP2011066930

PATIENT
  Age: 55 Year
  Sex: Female

DRUGS (7)
  1. CALCIUM ACETATE [Concomitant]
     Dosage: UNK
  2. ARTRAIT                            /00113801/ [Concomitant]
     Dosage: UNK
  3. ENBREL [Suspect]
     Indication: RHEUMATOID ARTHRITIS
     Dosage: 50 MG, WEEKLY
     Route: 058
     Dates: start: 20100901, end: 20111207
  4. FOLIC ACID [Concomitant]
     Dosage: UNK
  5. LOSACOR [Concomitant]
     Dosage: UNK
  6. LEXAPRO [Concomitant]
     Dosage: UNK
  7. ATENOLOL [Concomitant]
     Dosage: UNK

REACTIONS (7)
  - VOMITING [None]
  - INFECTION [None]
  - DIARRHOEA [None]
  - PYREXIA [None]
  - LYMPHADENOPATHY [None]
  - SWELLING [None]
  - PRURITUS [None]
